FAERS Safety Report 21794585 (Version 1)
Quarter: 2022Q4

REPORT INFORMATION
  Report Type: Spontaneous
  Country: US (occurrence: None)
  Receive Date: 20221227
  Receipt Date: 20221227
  Transmission Date: 20230113
  Serious: No
  Sender: FDA-Public Use
  Company Number: None

PATIENT
  Sex: Male

DRUGS (1)
  1. EMTRICITABINE\TENOFOVIR [Suspect]
     Active Substance: EMTRICITABINE\TENOFOVIR
     Indication: Drug therapy
     Dosage: 200/300MG ONCE DAILY ORAL? ?
     Route: 048
     Dates: start: 202211, end: 20221227

REACTIONS (1)
  - Drug ineffective [None]
